FAERS Safety Report 22938464 (Version 5)
Quarter: 2023Q4

REPORT INFORMATION
  Report Type: Spontaneous
  Country: US (occurrence: US)
  Receive Date: 20230913
  Receipt Date: 20231006
  Transmission Date: 20240110
  Serious: Yes (Other)
  Sender: FDA-Public Use
  Company Number: US-002147023-NVSC2023US197396

PATIENT
  Sex: Male

DRUGS (1)
  1. PLUVICTO [Suspect]
     Active Substance: LUTETIUM LU-177 VIPIVOTIDE TETRAXETAN
     Indication: Product used for unknown indication
     Dosage: UNK
     Route: 065
     Dates: start: 20230620, end: 20230801

REACTIONS (6)
  - Metastases to bone [Unknown]
  - Spinal cord compression [Unknown]
  - Muscular weakness [Unknown]
  - Prostate cancer [Unknown]
  - General physical health deterioration [Unknown]
  - Gait inability [Unknown]
